FAERS Safety Report 13552664 (Version 2)
Quarter: 2017Q3

REPORT INFORMATION
  Report Type: Report from Study
  Country: None (occurrence: US)
  Receive Date: 20170517
  Receipt Date: 20170814
  Transmission Date: 20171127
  Serious: Yes (Hospitalization, Other)
  Sender: FDA-Public Use
  Company Number: US-ABBVIE-17K-163-1974940-00

PATIENT
  Sex: Female
  Weight: 116.22 kg

DRUGS (2)
  1. HUMIRA [Suspect]
     Active Substance: ADALIMUMAB
     Route: 058
     Dates: start: 201608
  2. HUMIRA [Suspect]
     Active Substance: ADALIMUMAB
     Indication: ANKYLOSING SPONDYLITIS
     Route: 058
     Dates: start: 2013, end: 201608

REACTIONS (23)
  - Hypokalaemia [Recovered/Resolved]
  - Pain [Not Recovered/Not Resolved]
  - Diarrhoea [Unknown]
  - Depression [Not Recovered/Not Resolved]
  - Oral disorder [Unknown]
  - Nerve compression [Unknown]
  - Paraesthesia [Unknown]
  - Sjogren^s syndrome [Unknown]
  - Fatigue [Unknown]
  - Headache [Unknown]
  - Pain in extremity [Unknown]
  - Electrocardiogram abnormal [Unknown]
  - Ankylosing spondylitis [Unknown]
  - Anxiety [Not Recovered/Not Resolved]
  - Mobility decreased [Unknown]
  - Gait disturbance [Unknown]
  - Peripheral swelling [Unknown]
  - Musculoskeletal stiffness [Unknown]
  - Musculoskeletal pain [Unknown]
  - Oral pain [Unknown]
  - Arrhythmia [Unknown]
  - Blood cholesterol increased [Not Recovered/Not Resolved]
  - Arthralgia [Unknown]

NARRATIVE: CASE EVENT DATE: 2014
